FAERS Safety Report 26040664 (Version 1)
Quarter: 2025Q4

REPORT INFORMATION
  Report Type: Spontaneous
  Country: US (occurrence: None)
  Receive Date: 20251112
  Receipt Date: 20251112
  Transmission Date: 20260118
  Serious: Yes (Death, Hospitalization)
  Sender: FDA-CTU
  Company Number: None

PATIENT
  Age: 61 Year
  Sex: Male

DRUGS (1)
  1. OPSUMIT [Suspect]
     Active Substance: MACITENTAN
     Indication: Pulmonary arterial hypertension
     Dosage: FREQUENCY : DAILY;?
     Route: 048
     Dates: start: 20190220, end: 20251111

REACTIONS (6)
  - Asthenia [None]
  - Dysuria [None]
  - Abdominal pain [None]
  - Hyponatraemia [None]
  - Faecaloma [None]
  - Acute respiratory failure [None]

NARRATIVE: CASE EVENT DATE: 20251111
